FAERS Safety Report 7528251-8 (Version None)
Quarter: 2011Q2

REPORT INFORMATION
  Report Type: 
  Country: None (occurrence: None)
  Receive Date: 20110607
  Receipt Date: 20110218
  Transmission Date: 20111010
  Serious: No
  Sender: FDA-Public Use
  Company Number: US-ASTRAZENECA-2011SE09467

PATIENT
  Sex: Female

DRUGS (4)
  1. PRILOSEC [Suspect]
     Indication: REFLUX LARYNGITIS
     Route: 048
     Dates: start: 20030101
  2. PRILOSEC [Suspect]
     Route: 048
  3. ASPIRIN [Concomitant]
  4. GAVISCON [Concomitant]

REACTIONS (2)
  - OSTEOPOROSIS [None]
  - DRUG INEFFECTIVE [None]
